FAERS Safety Report 9490714 (Version 3)
Quarter: 2014Q1

REPORT INFORMATION
  Report Type: Spontaneous
  Country: GB (occurrence: None)
  Receive Date: 20130826
  Receipt Date: 20140124
  Transmission Date: 20141002
  Serious: Yes (Other)
  Sender: FDA-Public Use
  Company Number: KAD201308-001040

PATIENT
  Age: 44 Year
  Sex: Male

DRUGS (4)
  1. RIBAVIRIN [Suspect]
     Indication: HEPATITIS C
     Route: 048
     Dates: start: 20120912
  2. INCIVO [Suspect]
     Indication: HEPATITIS C
     Dosage: 750MG/8HR
     Route: 048
     Dates: start: 20120912, end: 20121205
  3. PEGINTERFERON ALFA-2B [Suspect]
     Indication: HEPATITIS C
     Route: 058
     Dates: start: 201209
  4. TELAPREVIR [Suspect]
     Indication: HEPATITIS C
     Route: 058
     Dates: start: 201209

REACTIONS (4)
  - Emotional disorder [None]
  - Lethargy [None]
  - Nausea [None]
  - Sciatica [None]
